FAERS Safety Report 12493619 (Version 1)
Quarter: 2016Q2

REPORT INFORMATION
  Report Type: Spontaneous
  Country: US (occurrence: US)
  Receive Date: 20160623
  Receipt Date: 20160623
  Transmission Date: 20160815
  Serious: Yes (Other)
  Sender: FDA-Public Use
  Company Number: US-MYLANLABS-2016M1025666

PATIENT

DRUGS (2)
  1. CETUXIMAB [Suspect]
     Active Substance: CETUXIMAB
     Indication: SQUAMOUS CELL CARCINOMA OF SKIN
     Route: 065
  2. VORICONAZOLE. [Suspect]
     Active Substance: VORICONAZOLE
     Indication: ASPERGILLUS INFECTION
     Route: 065

REACTIONS (4)
  - Squamous cell carcinoma of skin [Recovering/Resolving]
  - Face oedema [Unknown]
  - Condition aggravated [Unknown]
  - Inflammation [Unknown]
